FAERS Safety Report 7651419-7 (Version None)
Quarter: 2011Q3

REPORT INFORMATION
  Report Type: 
  Country: None (occurrence: None)
  Receive Date: 20110802
  Receipt Date: 20110722
  Transmission Date: 20111222
  Serious: Yes (Other)
  Sender: FDA-Public Use
  Company Number: PHEH2009US13749

PATIENT
  Sex: Male

DRUGS (1)
  1. ZOMETA [Suspect]
     Dates: start: 20010101

REACTIONS (8)
  - GENERAL PHYSICAL HEALTH DETERIORATION [None]
  - ANXIETY [None]
  - METASTASES TO SPINE [None]
  - PAIN [None]
  - ANHEDONIA [None]
  - OSTEONECROSIS OF JAW [None]
  - PERIODONTITIS [None]
  - METASTASES TO BONE [None]
